FAERS Safety Report 15568361 (Version 1)
Quarter: 2018Q4

REPORT INFORMATION
  Report Type: Spontaneous
  Country: US (occurrence: US)
  Receive Date: 20181031
  Receipt Date: 20181031
  Transmission Date: 20190205
  Serious: No
  Sender: FDA-Public Use
  Company Number: US-CELGENEUS-USA-20181008677

PATIENT
  Age: 51 Year
  Sex: Female

DRUGS (20)
  1. DEXAMETHASONE. [Concomitant]
     Active Substance: DEXAMETHASONE
     Indication: AMYLOIDOSIS
     Route: 065
     Dates: end: 201206
  2. ELOTUZUMAB. [Concomitant]
     Active Substance: ELOTUZUMAB
     Indication: AMYLOIDOSIS
     Route: 065
     Dates: start: 201807
  3. VELCADE [Concomitant]
     Active Substance: BORTEZOMIB
     Route: 041
     Dates: start: 201211, end: 201305
  4. MELPHALAN. [Concomitant]
     Active Substance: MELPHALAN
     Indication: PRODUCT USED FOR UNKNOWN INDICATION
     Route: 065
     Dates: start: 200512, end: 200512
  5. MELPHALAN. [Concomitant]
     Active Substance: MELPHALAN
     Route: 065
     Dates: start: 201306
  6. REVLIMID [Suspect]
     Active Substance: LENALIDOMIDE
     Indication: AMYLOIDOSIS
     Route: 048
     Dates: start: 201506, end: 201602
  7. DEXAMETHASONE. [Concomitant]
     Active Substance: DEXAMETHASONE
     Route: 065
     Dates: start: 201807
  8. REVLIMID [Suspect]
     Active Substance: LENALIDOMIDE
     Indication: PLASMA CELL MYELOMA
     Route: 048
     Dates: start: 200804
  9. VELCADE [Concomitant]
     Active Substance: BORTEZOMIB
     Route: 041
     Dates: end: 201506
  10. ELOTUZUMAB. [Concomitant]
     Active Substance: ELOTUZUMAB
     Indication: PLASMA CELL MYELOMA
     Route: 065
     Dates: start: 201603
  11. VELCADE [Concomitant]
     Active Substance: BORTEZOMIB
     Indication: AMYLOIDOSIS
     Route: 041
     Dates: end: 201206
  12. REVLIMID [Suspect]
     Active Substance: LENALIDOMIDE
     Route: 048
     Dates: start: 201807
  13. DEXAMETHASONE. [Concomitant]
     Active Substance: DEXAMETHASONE
     Route: 065
     Dates: start: 201211, end: 201305
  14. DEXAMETHASONE. [Concomitant]
     Active Substance: DEXAMETHASONE
     Route: 065
     Dates: start: 201603
  15. KYPROLIS [Concomitant]
     Active Substance: CARFILZOMIB
     Indication: PLASMA CELL MYELOMA
     Route: 065
     Dates: start: 201506, end: 201602
  16. REVLIMID [Suspect]
     Active Substance: LENALIDOMIDE
     Route: 048
     Dates: start: 201603
  17. VELCADE [Concomitant]
     Active Substance: BORTEZOMIB
     Indication: PLASMA CELL MYELOMA
     Route: 041
     Dates: end: 200905
  18. DEXAMETHASONE. [Concomitant]
     Active Substance: DEXAMETHASONE
     Indication: PLASMA CELL MYELOMA
     Route: 065
     Dates: start: 200804, end: 200905
  19. DEXAMETHASONE. [Concomitant]
     Active Substance: DEXAMETHASONE
     Route: 065
     Dates: start: 201506, end: 201602
  20. KYPROLIS [Concomitant]
     Active Substance: CARFILZOMIB
     Indication: AMYLOIDOSIS
     Route: 065
     Dates: start: 201603

REACTIONS (1)
  - Drug intolerance [Unknown]
